FAERS Safety Report 7586905-1 (Version None)
Quarter: 2011Q3

REPORT INFORMATION
  Report Type: 
  Country: None (occurrence: None)
  Receive Date: 20110701
  Receipt Date: 20110624
  Transmission Date: 20111222
  Serious: Yes (Death)
  Sender: FDA-Public Use
  Company Number: US-GENZYME-CAMP-1001497

PATIENT
  Sex: Male
  Weight: 120.18 kg

DRUGS (5)
  1. CAMPATH [Suspect]
     Dosage: 30 MG, 3X/W; MONDAY, WEDNESDAY, FRIDAY
     Route: 065
     Dates: start: 20110128, end: 20110128
  2. CAMPATH [Suspect]
     Indication: T-CELL PROLYMPHOCYTIC LEUKAEMIA
     Dosage: 30 MG, 3X/W; MONDAY, WEDNESDAY, FRIDAY
     Route: 065
     Dates: start: 20110119, end: 20110119
  3. CAMPATH [Suspect]
     Dosage: 30 MG, 3X/W; MONDAY, WEDNESDAY, FRIDAY
     Route: 065
     Dates: start: 20110121, end: 20110121
  4. CAMPATH [Suspect]
     Dosage: 30 MG, 3X/W; MONDAY, WEDNESDAY, FRIDAY
     Route: 065
     Dates: start: 20110124, end: 20110124
  5. CAMPATH [Suspect]
     Dosage: 30 MG, 3X/W; MONDAY, WEDNESDAY, FRIDAY
     Route: 065
     Dates: start: 20110126, end: 20110126

REACTIONS (1)
  - T-CELL PROLYMPHOCYTIC LEUKAEMIA [None]
